FAERS Safety Report 13732524 (Version 1)
Quarter: 2017Q3

REPORT INFORMATION
  Report Type: Spontaneous
  Country: US (occurrence: US)
  Receive Date: 20170707
  Receipt Date: 20170707
  Transmission Date: 20171127
  Serious: Yes (Life-Threatening, Hospitalization, Disabling)
  Sender: FDA-Public Use
  Company Number: US-JNJFOC-20170615821

PATIENT
  Age: 64 Year
  Sex: Male

DRUGS (10)
  1. INVEGA SUSTENNA [Suspect]
     Active Substance: PALIPERIDONE PALMITATE
     Indication: SCHIZOAFFECTIVE DISORDER
     Dosage: STARTED BEFORE 2016
     Route: 030
     Dates: start: 20170327
  2. DEPAKOTE [Suspect]
     Active Substance: DIVALPROEX SODIUM
     Indication: PRODUCT USED FOR UNKNOWN INDICATION
     Route: 065
  3. INVEGA SUSTENNA [Suspect]
     Active Substance: PALIPERIDONE PALMITATE
     Indication: SCHIZOAFFECTIVE DISORDER
     Route: 030
     Dates: start: 20170501
  4. DIVALPROEX [Concomitant]
     Active Substance: DIVALPROEX SODIUM
     Indication: SCHIZOPHRENIA
     Dosage: STARTED BEFORE 2016
     Route: 065
     Dates: end: 20170509
  5. METFORMIN [Concomitant]
     Active Substance: METFORMIN HYDROCHLORIDE
     Indication: DIABETES MELLITUS
     Route: 048
  6. INVEGA SUSTENNA [Suspect]
     Active Substance: PALIPERIDONE PALMITATE
     Indication: SCHIZOPHRENIA
     Route: 030
     Dates: start: 20170501
  7. INVEGA SUSTENNA [Suspect]
     Active Substance: PALIPERIDONE PALMITATE
     Indication: SCHIZOPHRENIA
     Dosage: STARTED BEFORE 2016
     Route: 030
     Dates: start: 20170327
  8. BENZOTROPINE [Concomitant]
     Active Substance: BENZTROPINE
     Indication: SCHIZOPHRENIA
     Dosage: STARTED BEFORE 2016
     Route: 048
     Dates: end: 20170509
  9. RISPERIDONE. [Concomitant]
     Active Substance: RISPERIDONE
     Indication: SCHIZOPHRENIA
     Dosage: STARTED BEFORE 2016
     Route: 048
     Dates: end: 20170509
  10. INSULIN [Concomitant]
     Active Substance: INSULIN NOS
     Indication: DIABETES MELLITUS
     Route: 065

REACTIONS (1)
  - Neuroleptic malignant syndrome [Recovering/Resolving]
